FAERS Safety Report 10642764 (Version 1)
Quarter: 2014Q4

REPORT INFORMATION
  Report Type: Spontaneous
  Country: US (occurrence: US)
  Receive Date: 20141210
  Receipt Date: 20141210
  Transmission Date: 20150529
  Serious: No
  Sender: FDA-Public Use
  Company Number: US-BAUSCH-BL-2014-007606

PATIENT
  Age: 68 Year
  Sex: Female

DRUGS (1)
  1. XENAZINE [Suspect]
     Active Substance: TETRABENAZINE
     Indication: HUNTINGTON^S DISEASE
     Dosage: 2 TABLETS IN THE MORNING, 2 TABLETS IN THE AFTERNOON, AND 1 TABLET IN THE EVENING
     Route: 048
     Dates: start: 201402

REACTIONS (2)
  - No adverse event [Unknown]
  - Drug administration error [Recovered/Resolved]

NARRATIVE: CASE EVENT DATE: 201402
